FAERS Safety Report 13624793 (Version 1)
Quarter: 2017Q2

REPORT INFORMATION
  Report Type: Spontaneous
  Country: DE (occurrence: DE)
  Receive Date: 20170608
  Receipt Date: 20170608
  Transmission Date: 20170830
  Serious: Yes (Other)
  Sender: FDA-Public Use
  Company Number: DE-SUN PHARMACEUTICAL INDUSTRIES LTD-2017RR-140979

PATIENT
  Age: 35 Year
  Sex: Male

DRUGS (1)
  1. IMATINIB [Suspect]
     Active Substance: IMATINIB
     Indication: GASTROINTESTINAL STROMAL TUMOUR
     Dosage: 400 MG, DAILY
     Route: 065
     Dates: start: 201508

REACTIONS (5)
  - Drug effect incomplete [Unknown]
  - Drug resistance [Unknown]
  - Acquired gene mutation [Unknown]
  - Gene mutation [Unknown]
  - Leukopenia [Unknown]
